FAERS Safety Report 21984762 (Version 1)
Quarter: 2023Q1

REPORT INFORMATION
  Report Type: Report from Study
  Country: JP (occurrence: JP)
  Receive Date: 20230213
  Receipt Date: 20230213
  Transmission Date: 20230417
  Serious: Yes (Hospitalization)
  Sender: FDA-Public Use
  Company Number: JP-VIIV HEALTHCARE LIMITED-JP2022JPN076352

PATIENT

DRUGS (5)
  1. DOLUTEGRAVIR SODIUM\LAMIVUDINE [Suspect]
     Active Substance: DOLUTEGRAVIR SODIUM\LAMIVUDINE
     Indication: HIV infection
     Dosage: 1 DF, 1D
     Dates: start: 20200911
  2. ETIZOLAM [Concomitant]
     Active Substance: ETIZOLAM
     Indication: Anxiety disorder
     Dosage: UNK
     Dates: end: 20211018
  3. NITRAZEPAM [Concomitant]
     Active Substance: NITRAZEPAM
     Indication: Anxiety disorder
     Dosage: UNK
     Dates: start: 20211018, end: 20211129
  4. TRAZODONE HYDROCHLORIDE [Concomitant]
     Active Substance: TRAZODONE HYDROCHLORIDE
     Indication: Anxiety disorder
     Dosage: UNK
     Dates: start: 20211020
  5. DAYVIGO [Concomitant]
     Active Substance: LEMBOREXANT
     Dosage: UNK
     Dates: start: 20211129

REACTIONS (2)
  - Anxiety disorder [Recovering/Resolving]
  - Condition aggravated [Recovering/Resolving]
